FAERS Safety Report 13458532 (Version 1)
Quarter: 2017Q2

REPORT INFORMATION
  Report Type: Spontaneous
  Country: US (occurrence: US)
  Receive Date: 20170419
  Receipt Date: 20170419
  Transmission Date: 20170830
  Serious: No
  Sender: FDA-Public Use
  Company Number: US-SHIRE-US201708293

PATIENT
  Sex: Female

DRUGS (2)
  1. NATPARA (PARATHYROID HORMONE) [Suspect]
     Active Substance: PARATHYROID HORMONE
     Indication: PRODUCT USED FOR UNKNOWN INDICATION
     Dosage: 50 ?G, 1X/DAY:QD
     Route: 058
  2. NATPARA 31G X 8 MM BD ULTRA-FINE NEEDLE [Suspect]
     Active Substance: DEVICE

REACTIONS (3)
  - Device leakage [Unknown]
  - Drug dose omission [Unknown]
  - No adverse event [Unknown]
